FAERS Safety Report 11649178 (Version 1)
Quarter: 2015Q4

REPORT INFORMATION
  Report Type: Spontaneous
  Country: CN (occurrence: CN)
  Receive Date: 20151021
  Receipt Date: 20151021
  Transmission Date: 20160304
  Serious: Yes (Hospitalization)
  Sender: FDA-Public Use
  Company Number: CN-PFIZER INC-2015355422

PATIENT
  Age: 39 Year
  Sex: Male
  Weight: 71 kg

DRUGS (1)
  1. ZITHROMAX [Suspect]
     Active Substance: AZITHROMYCIN DIHYDRATE
     Indication: TONSILLITIS
     Dosage: 0.2 G, 1X/DAY
     Route: 048
     Dates: start: 20150331, end: 20150403

REACTIONS (3)
  - Dermatitis exfoliative [Recovered/Resolved]
  - Pruritus [Recovered/Resolved]
  - Rash [Recovered/Resolved]

NARRATIVE: CASE EVENT DATE: 20150403
